FAERS Safety Report 6584779-9 (Version None)
Quarter: 2010Q1

REPORT INFORMATION
  Report Type: 
  Country: None (occurrence: None)
  Receive Date: 20100205
  Receipt Date: 20100120
  Transmission Date: 20100710
  Serious: Yes (Other)
  Sender: FDA-Public Use
  Company Number: AUR-APL-2010-00192

PATIENT
  Sex: Female

DRUGS (1)
  1. CITALOPRAM [Suspect]
     Indication: DEPRESSION
     Dosage: 20-30MG, QD, TRANSPLACENT
     Route: 064

REACTIONS (6)
  - ENLARGED CLITORIS [None]
  - MATERNAL DRUGS AFFECTING FOETUS [None]
  - NEONATAL DISORDER [None]
  - POOR SUCKING REFLEX [None]
  - PRIAPISM [None]
  - RESTLESSNESS [None]
